FAERS Safety Report 7441052-4 (Version None)
Quarter: 2011Q2

REPORT INFORMATION
  Report Type: 
  Country: None (occurrence: None)
  Receive Date: 20110427
  Receipt Date: 20100601
  Transmission Date: 20111010
  Serious: Yes (Hospitalization)
  Sender: FDA-Public Use
  Company Number: PHHY2010NL91324

PATIENT
  Sex: Male
  Weight: 54 kg

DRUGS (9)
  1. INEGY [Concomitant]
     Dosage: UNK
  2. DIOVAN [Concomitant]
     Dosage: UNK
  3. AUGMENTIN [Concomitant]
     Dosage: UNK
     Dates: start: 20100503, end: 20100510
  4. PANTOZOL [Concomitant]
     Dosage: UNK
  5. DIOVAN [Suspect]
     Dosage: UNK
  6. ERBITUX [Concomitant]
     Dosage: 650 MG, UNK
     Dates: start: 20100323, end: 20100503
  7. AMARYL [Concomitant]
     Dosage: UNK
  8. ERBITUX [Concomitant]
     Dosage: 400 MG, QW
  9. DURAGESIC-100 [Concomitant]
     Dosage: 25 UG ONCE PER THREE DAYS

REACTIONS (1)
  - INTERSTITIAL LUNG DISEASE [None]
